FAERS Safety Report 14787853 (Version 3)
Quarter: 2019Q2

REPORT INFORMATION
  Report Type: Spontaneous
  Country: US (occurrence: US)
  Receive Date: 20180422
  Receipt Date: 20190502
  Transmission Date: 20190711
  Serious: Yes (Other)
  Sender: FDA-Public Use
  Company Number: US-ASTRAZENECA-2018SE47870

PATIENT
  Age: 22544 Day
  Sex: Male

DRUGS (19)
  1. PRILOSEC [Suspect]
     Active Substance: OMEPRAZOLE MAGNESIUM
     Route: 048
     Dates: start: 1991, end: 2016
  2. PROTONIX [Suspect]
     Active Substance: PANTOPRAZOLE SODIUM
     Route: 065
     Dates: start: 20050108
  3. PLAVIX [Concomitant]
     Active Substance: CLOPIDOGREL BISULFATE
  4. PRILOSEC [Suspect]
     Active Substance: OMEPRAZOLE MAGNESIUM
     Dosage: GENERIC
     Route: 065
     Dates: start: 1991, end: 2016
  5. NOVOLOG [Concomitant]
     Active Substance: INSULIN ASPART
  6. PREVACID 24 HR [Suspect]
     Active Substance: LANSOPRAZOLE
     Route: 065
     Dates: start: 1991, end: 2016
  7. LISINOPRIL. [Concomitant]
     Active Substance: LISINOPRIL
  8. CIPROFLOXACIN. [Concomitant]
     Active Substance: CIPROFLOXACIN
  9. PREVACID [Suspect]
     Active Substance: LANSOPRAZOLE
     Route: 065
     Dates: start: 1991, end: 2016
  10. PREVACID [Suspect]
     Active Substance: LANSOPRAZOLE
     Route: 048
     Dates: start: 20050830
  11. FUROSEMIDE. [Concomitant]
     Active Substance: FUROSEMIDE
  12. NEXIUM [Suspect]
     Active Substance: ESOMEPRAZOLE MAGNESIUM
     Route: 048
     Dates: start: 1991, end: 2016
  13. GABAPENTIN. [Concomitant]
     Active Substance: GABAPENTIN
  14. NEXIUM [Suspect]
     Active Substance: ESOMEPRAZOLE MAGNESIUM
     Route: 048
     Dates: start: 20050315
  15. NEXIUM 24HR [Suspect]
     Active Substance: ESOMEPRAZOLE MAGNESIUM
     Route: 048
     Dates: start: 1991, end: 2016
  16. PRILOSEC OTC [Suspect]
     Active Substance: OMEPRAZOLE MAGNESIUM
     Route: 048
     Dates: start: 1991, end: 2016
  17. ALBUTEROL. [Concomitant]
     Active Substance: ALBUTEROL
  18. PROTONIX [Suspect]
     Active Substance: PANTOPRAZOLE SODIUM
     Route: 065
     Dates: start: 1991, end: 2016
  19. ZOCOR [Concomitant]
     Active Substance: SIMVASTATIN

REACTIONS (10)
  - Urinary tract infection [Unknown]
  - Metabolic acidosis [Unknown]
  - Coronary artery disease [Unknown]
  - Peripheral vascular disorder [Unknown]
  - Cardiac failure congestive [Unknown]
  - Chronic kidney disease [Unknown]
  - Acute kidney injury [Unknown]
  - Hyperkalaemia [Unknown]
  - Osteoarthritis [Unknown]
  - Renal failure [Unknown]

NARRATIVE: CASE EVENT DATE: 20071016
